FAERS Safety Report 8221031-X (Version None)
Quarter: 2012Q1

REPORT INFORMATION
  Report Type: 
  Country: None (occurrence: None)
  Receive Date: 20120320
  Receipt Date: 20120314
  Transmission Date: 20120608
  Serious: Yes (Other)
  Sender: FDA-Public Use
  Company Number: US-PFIZER INC-2012067723

PATIENT
  Sex: Male

DRUGS (3)
  1. SYNTHROID [Concomitant]
     Dosage: UNK
     Dates: start: 19950101
  2. TESTOSTERONE [Concomitant]
     Dosage: UNK
  3. CYTOMEL [Suspect]
     Dosage: UNK
     Dates: start: 20010101

REACTIONS (2)
  - BLOOD THYROID STIMULATING HORMONE ABNORMAL [None]
  - THYROID DISORDER [None]
